FAERS Safety Report 23574816 (Version 2)
Quarter: 2024Q1

REPORT INFORMATION
  Report Type: Spontaneous
  Country: DE (occurrence: DE)
  Receive Date: 20240228
  Receipt Date: 20240306
  Transmission Date: 20240410
  Serious: No
  Sender: FDA-Public Use
  Company Number: DE-ABBVIE-5637620

PATIENT

DRUGS (2)
  1. RINVOQ [Suspect]
     Active Substance: UPADACITINIB
     Indication: Chemotherapy cytokine prophylaxis
     Dosage: FORM STRENGTH: 15 MILLIGRAM?FIRST ADMIN AND LAST ADMIN DATE WAS 2024
     Route: 048
  2. RINVOQ [Suspect]
     Active Substance: UPADACITINIB
     Indication: Chemotherapy cytokine prophylaxis
     Dosage: FORM STRENGTH UNITS:15 MILLIGRAM
     Route: 048
     Dates: start: 20240101, end: 2024

REACTIONS (1)
  - Off label use [Unknown]

NARRATIVE: CASE EVENT DATE: 20240101
